FAERS Safety Report 13718795 (Version 3)
Quarter: 2018Q2

REPORT INFORMATION
  Report Type: Report from Study
  Country: US (occurrence: US)
  Receive Date: 20170705
  Receipt Date: 20180612
  Transmission Date: 20180711
  Serious: Yes (Hospitalization, Other)
  Sender: FDA-Public Use
  Company Number: US-ACTELION-A-US2017-150342

PATIENT
  Age: 59 Year
  Sex: Male
  Weight: 65.76 kg

DRUGS (1)
  1. OPSUMIT [Suspect]
     Active Substance: MACITENTAN
     Indication: PULMONARY ARTERIAL HYPERTENSION
     Dosage: 10 MG, QD
     Route: 048
     Dates: start: 20161108, end: 20170522

REACTIONS (17)
  - Pulmonary arterial hypertension [Recovered/Resolved]
  - Heart transplant [Unknown]
  - Urinary tract infection pseudomonal [Unknown]
  - Atrial flutter [Unknown]
  - Deep vein thrombosis [Unknown]
  - Gastrointestinal tube insertion [Unknown]
  - Right ventricular dysfunction [Unknown]
  - Tracheostomy [Unknown]
  - Acute respiratory failure [Unknown]
  - Lung transplant [Unknown]
  - Systemic candida [Unknown]
  - Haemorrhagic anaemia [Unknown]
  - Post procedural haemorrhage [Unknown]
  - Hypoxia [Unknown]
  - Weaning failure [Unknown]
  - Pleural effusion [Unknown]
  - Dizziness [Not Recovered/Not Resolved]

NARRATIVE: CASE EVENT DATE: 20170523
